FAERS Safety Report 23218060 (Version 1)
Quarter: 2023Q4

REPORT INFORMATION
  Report Type: Spontaneous
  Country: US (occurrence: US)
  Receive Date: 20231122
  Receipt Date: 20231122
  Transmission Date: 20240110
  Serious: Yes (Death)
  Sender: FDA-Public Use
  Company Number: US-MYLANLABS-2023M1124015

PATIENT
  Age: 18 Year
  Sex: Male

DRUGS (2)
  1. CISPLATIN [Suspect]
     Active Substance: CISPLATIN
     Indication: Choriocarcinoma
     Dosage: UNK UNK, CYCLE, RECEIVED 4 CYCLES
     Route: 065
  2. BLEOMYCIN [Suspect]
     Active Substance: BLEOMYCIN SULFATE
     Indication: Choriocarcinoma
     Dosage: UNK, CYCLE, RECEIVED 4 CYCLES
     Route: 065

REACTIONS (1)
  - Drug ineffective [Fatal]
